FAERS Safety Report 9168357 (Version 1)
Quarter: 2013Q1

REPORT INFORMATION
  Report Type: Spontaneous
  Country: DE (occurrence: None)
  Receive Date: 20130308
  Receipt Date: 20130308
  Transmission Date: 20140127
  Serious: Yes (Congenital Anomaly)
  Sender: FDA-Public Use
  Company Number: DSM-2013-00284

PATIENT
  Sex: Female

DRUGS (1)
  1. OLMESARTAN MEDOXOMIL [Suspect]
     Indication: FOETAL EXPOSURE DURING PREGNANCY
     Dosage: INTRA, UTERINE??PREGNANCY WEEK 0 - PREGNANCY WEEK 25+6

REACTIONS (6)
  - Congenital renal disorder [None]
  - Maternal drugs affecting foetus [None]
  - Microcephaly [None]
  - Atrial septal defect [None]
  - Foetal cerebrovascular disorder [None]
  - Hypertension [None]
